FAERS Safety Report 6793718-7 (Version None)
Quarter: 2010Q2

REPORT INFORMATION
  Report Type: 
  Country: None (occurrence: None)
  Receive Date: 20100624
  Receipt Date: 20090209
  Transmission Date: 20101027
  Serious: No
  Sender: FDA-Public Use
  Company Number: US-PFIZER INC-2009167516

PATIENT
  Age: 42 Year
  Sex: Female

DRUGS (2)
  1. DEPO-PROVERA [Suspect]
  2. FENTANYL [Interacting]

REACTIONS (2)
  - DRUG INTERACTION [None]
  - METRORRHAGIA [None]
